FAERS Safety Report 4517060-X (Version None)
Quarter: 2004Q4

REPORT INFORMATION
  Report Type: 
  Country: None (occurrence: None)
  Receive Date: 20041029
  Receipt Date: 20041001
  Transmission Date: 20050328
  Serious: No
  Sender: FDA-Public Use
  Company Number: 2004-120837-NL

PATIENT
  Age: 24 Year
  Sex: Female
  Weight: 68.2 kg

DRUGS (1)
  1. NUVARING [Suspect]
     Indication: CONTRACEPTION
     Dosage: DF DAILY VAGINAL
     Route: 067
     Dates: start: 20040827

REACTIONS (7)
  - BREAST TENDERNESS [None]
  - DIZZINESS [None]
  - FATIGUE [None]
  - NIPPLE PAIN [None]
  - VAGINAL CONTRACEPTIVE DEVICE EXPELLED [None]
  - VAGINAL DISCHARGE [None]
  - WITHDRAWAL BLEEDING IRREGULAR [None]
